FAERS Safety Report 14287450 (Version 1)
Quarter: 2017Q4

REPORT INFORMATION
  Report Type: Spontaneous
  Country: JP (occurrence: JP)
  Receive Date: 20171214
  Receipt Date: 20171214
  Transmission Date: 20180321
  Serious: Yes (Death)
  Sender: FDA-Public Use
  Company Number: JP-BAYER-2017-238229

PATIENT
  Sex: Male

DRUGS (2)
  1. BAYASPIRIN 100 MG [Suspect]
     Active Substance: ASPIRIN
     Route: 048
  2. WARFARIN [Interacting]
     Active Substance: WARFARIN

REACTIONS (2)
  - Cerebellar haemorrhage [Fatal]
  - Drug interaction [Fatal]
